FAERS Safety Report 21217447 (Version 9)
Quarter: 2023Q1

REPORT INFORMATION
  Report Type: Report from Study
  Country: ES (occurrence: ES)
  Receive Date: 20220816
  Receipt Date: 20230110
  Transmission Date: 20230418
  Serious: Yes (Hospitalization, Other)
  Sender: FDA-Public Use
  Company Number: ES-Accord-271653

PATIENT
  Age: 69 Year
  Sex: Female
  Weight: 66.5 kg

DRUGS (14)
  1. RITUXIMAB [Suspect]
     Active Substance: RITUXIMAB
     Indication: Diffuse large B-cell lymphoma stage IV
     Route: 042
     Dates: start: 20220412, end: 20220712
  2. OXALIPLATIN [Suspect]
     Active Substance: OXALIPLATIN
     Indication: Diffuse large B-cell lymphoma stage IV
     Dosage: 1Q2W
     Route: 042
     Dates: start: 20220413, end: 20220713
  3. GEMCITABINE HYDROCHLORIDE [Suspect]
     Active Substance: GEMCITABINE HYDROCHLORIDE
     Indication: Diffuse large B-cell lymphoma stage IV
     Dosage: 1Q2W
     Route: 042
     Dates: start: 20220413, end: 20220713
  4. DEXAMETHASONE [Concomitant]
     Active Substance: DEXAMETHASONE
     Route: 042
     Dates: start: 20220713, end: 20220713
  5. MAGNESIOBOI [Concomitant]
     Dates: start: 20220607, end: 20220922
  6. BISOPROLOL [Concomitant]
     Active Substance: BISOPROLOL
     Dates: start: 20200703
  7. ONDANSETRON [Concomitant]
     Active Substance: ONDANSETRON
     Dates: start: 20201025, end: 20220705
  8. ENOXAPARIN [Concomitant]
     Active Substance: ENOXAPARIN
     Dates: start: 20220407
  9. ASCORBIC ACID\POTASSIUM BICARBONATE [Concomitant]
     Active Substance: ASCORBIC ACID\POTASSIUM BICARBONATE
     Dates: start: 20220607, end: 20220804
  10. METOCLOPRAMIDE HYDROCHLORIDE [Concomitant]
     Active Substance: METOCLOPRAMIDE HYDROCHLORIDE
     Dates: start: 20220421, end: 20220705
  11. POTASSIUM ASCORBATE [Concomitant]
     Active Substance: POTASSIUM ASCORBATE
     Dates: start: 20220607, end: 20220804
  12. CYTARABINE [Concomitant]
     Active Substance: CYTARABINE
     Dates: start: 20200803, end: 202010
  13. METHYLPREDNISOLONE [Concomitant]
     Active Substance: METHYLPREDNISOLONE
     Dates: start: 20200803, end: 202010
  14. CISPLATIN [Concomitant]
     Active Substance: CISPLATIN
     Dates: start: 20200803, end: 202010

REACTIONS (3)
  - Pneumonia [Unknown]
  - Septic shock [Recovered/Resolved]
  - Off label use [Unknown]

NARRATIVE: CASE EVENT DATE: 20220716
